FAERS Safety Report 10100242 (Version 1)
Quarter: 2014Q2

REPORT INFORMATION
  Report Type: Spontaneous
  Country: US (occurrence: US)
  Receive Date: 20140423
  Receipt Date: 20140423
  Transmission Date: 20141212
  Serious: No
  Sender: FDA-Public Use
  Company Number: US-GILEAD-2013-0076424

PATIENT
  Sex: Female

DRUGS (2)
  1. LETAIRIS [Suspect]
     Indication: PULMONARY ARTERIAL HYPERTENSION
     Dosage: 5 MG, UNK
     Dates: start: 20130308, end: 20130509
  2. ADCIRCA [Concomitant]

REACTIONS (5)
  - Cough [Unknown]
  - Oedema [Unknown]
  - Oedema [Unknown]
  - Head discomfort [Unknown]
  - Nasal congestion [Unknown]
